FAERS Safety Report 13850018 (Version 1)
Quarter: 2017Q3

REPORT INFORMATION
  Report Type: Other
  Country: DE (occurrence: DE)
  Receive Date: 20170809
  Receipt Date: 20170809
  Transmission Date: 20171127
  Serious: No
  Sender: FDA-Public Use
  Company Number: DE-LUPIN PHARMACEUTICALS INC.-E2B_00006256

PATIENT
  Age: 68 Year
  Sex: Male
  Weight: 80 kg

DRUGS (1)
  1. LEVETIRACETAM. [Suspect]
     Active Substance: LEVETIRACETAM
     Indication: SEIZURE
     Dosage: 500 MG,BID,
     Route: 048
     Dates: start: 20160530

REACTIONS (2)
  - Erectile dysfunction [Recovering/Resolving]
  - Anorgasmia [Recovering/Resolving]

NARRATIVE: CASE EVENT DATE: 201606
